FAERS Safety Report 7493140-4 (Version None)
Quarter: 2011Q2

REPORT INFORMATION
  Report Type: 
  Country: None (occurrence: None)
  Receive Date: 20110511
  Receipt Date: 20110505
  Transmission Date: 20111010
  Serious: Yes (Other)
  Sender: FDA-Public Use
  Company Number: 2011SP020382

PATIENT
  Age: 62 Year
  Sex: Male

DRUGS (6)
  1. CYCLOPENTOLATE (CYCLOPHENTOLATE) [Suspect]
     Indication: PRODUCT USED FOR UNKNOWN INDICATION
  2. TAMSULOSIN HCL [Suspect]
     Indication: PRODUCT USED FOR UNKNOWN INDICATION
  3. HOMATROPINE [Concomitant]
  4. TOBRAMYCIN [Suspect]
     Indication: PRODUCT USED FOR UNKNOWN INDICATION
  5. GATIFLOXACIN [Concomitant]
  6. DEXAMETHASONE [Suspect]
     Indication: PRODUCT USED FOR UNKNOWN INDICATION

REACTIONS (3)
  - VISUAL ACUITY REDUCED [None]
  - FLOPPY IRIS SYNDROME [None]
  - GLAUCOMA [None]
